FAERS Safety Report 6380226-0 (Version None)
Quarter: 2009Q3

REPORT INFORMATION
  Report Type: 
  Country: None (occurrence: None)
  Receive Date: 20090923
  Receipt Date: 20090909
  Transmission Date: 20100115
  Serious: Yes (Other)
  Sender: FDA-Public Use
  Company Number: FR-1170873

PATIENT
  Age: 45 Year
  Sex: Female

DRUGS (2)
  1. ATROPINE SULFATE [Suspect]
     Dosage: 2 GTTS  OPHTHALMIC
     Route: 047
     Dates: start: 20090830, end: 20090830
  2. COLLYRE BLEU LAITER (COLLYRES LAITER) OPHTHALMIC SOLUTION EYE DROPS, S [Suspect]
     Dosage: OPHTHALMIC
     Route: 047

REACTIONS (5)
  - ACCOMMODATION DISORDER [None]
  - MEDICATION ERROR [None]
  - MYDRIASIS [None]
  - VISION BLURRED [None]
  - WRONG DRUG ADMINISTERED [None]
